FAERS Safety Report 14292342 (Version 1)
Quarter: 2017Q4

REPORT INFORMATION
  Report Type: Spontaneous
  Country: FR (occurrence: FR)
  Receive Date: 20171215
  Receipt Date: 20171215
  Transmission Date: 20180321
  Serious: Yes (Disabling)
  Sender: FDA-Public Use
  Company Number: FR-ROCHE-2037201

PATIENT
  Age: 37 Year
  Sex: Male

DRUGS (18)
  1. DEROXAT [Suspect]
     Active Substance: PAROXETINE HYDROCHLORIDE
     Indication: POST-TRAUMATIC STRESS DISORDER
     Route: 065
  2. RIVOTRIL [Suspect]
     Active Substance: CLONAZEPAM
     Indication: NECK PAIN
     Route: 065
  3. TEMERIT [Concomitant]
     Active Substance: NEBIVOLOL
     Indication: TACHYCARDIA
     Dosage: UNK
     Route: 065
  4. VALIUM [Concomitant]
     Active Substance: DIAZEPAM
     Dosage: 1 UNK, SINGLE
     Route: 065
  5. DOLIPRANE [Concomitant]
     Active Substance: ACETAMINOPHEN
     Dosage: UNK
     Route: 065
  6. LAROXYL [Concomitant]
     Active Substance: AMITRIPTYLINE HYDROCHLORIDE
     Route: 065
  7. DI-ANTALVIC [Concomitant]
     Active Substance: ACETAMINOPHEN\PROPOXYPHENE HYDROCHLORIDE
     Indication: PRODUCT USED FOR UNKNOWN INDICATION
     Dosage: UNK
     Route: 065
  8. PAROXETINE. [Suspect]
     Active Substance: PAROXETINE
     Indication: POST-TRAUMATIC STRESS DISORDER
     Route: 065
  9. MIOREL (FRANCE) [Concomitant]
     Active Substance: METHOCARBAMOL
     Dosage: UNK
     Route: 065
  10. PRAXINOR (FRANCE) [Concomitant]
     Dosage: UNK
     Route: 065
  11. ATARAX [Concomitant]
     Active Substance: HYDROXYZINE HYDROCHLORIDE
     Dosage: UNK
     Route: 065
  12. SOLUPRED (FRANCE) [Concomitant]
     Active Substance: PREDNISOLONE
     Dosage: UNK
     Route: 065
  13. IXEL [Concomitant]
     Active Substance: MILNACIPRAN HYDROCHLORIDE
     Dosage: UNK
     Route: 065
  14. STRESAM [Concomitant]
     Active Substance: ETIFOXINE
     Dosage: UNK
     Route: 065
  15. TETRAZEPAM [Suspect]
     Active Substance: TETRAZEPAM
     Indication: PRODUCT USED FOR UNKNOWN INDICATION
     Route: 065
  16. TANGANIL [Concomitant]
     Active Substance: ACETYLLEUCINE
     Route: 065
  17. SEROPRAM (CITALOPRAM HYDROBROMIDE) [Concomitant]
     Active Substance: CITALOPRAM HYDROBROMIDE
     Dosage: UNK
     Route: 065
  18. UVEDOSE [Concomitant]
     Active Substance: CHOLECALCIFEROL
     Dosage: UNK
     Route: 065

REACTIONS (19)
  - Sleep disorder [Unknown]
  - Iatrogenic injury [Unknown]
  - Hallucination, auditory [Recovered/Resolved]
  - Presyncope [Unknown]
  - Tachycardia [Unknown]
  - Photophobia [Recovered/Resolved]
  - Accommodation disorder [Recovered/Resolved]
  - Affect lability [Unknown]
  - Tinnitus [Unknown]
  - Suicidal ideation [Recovered/Resolved]
  - Disturbance in attention [Unknown]
  - Vertigo [Unknown]
  - Panic attack [Recovered/Resolved with Sequelae]
  - Agoraphobia [Recovered/Resolved with Sequelae]
  - Anxiety [Recovered/Resolved with Sequelae]
  - Erectile dysfunction [Unknown]
  - Neck pain [Unknown]
  - Memory impairment [Recovered/Resolved]
  - Hallucination, visual [Recovered/Resolved]
